FAERS Safety Report 7320695-2 (Version None)
Quarter: 2011Q1

REPORT INFORMATION
  Report Type: 
  Country: None (occurrence: None)
  Receive Date: 20110228
  Receipt Date: 20110223
  Transmission Date: 20110831
  Serious: Yes (Hospitalization, Other)
  Sender: FDA-Public Use
  Company Number: US-PFIZER INC-2011040371

PATIENT
  Sex: Female

DRUGS (1)
  1. SUTENT [Suspect]
     Dosage: 25 MG, 1X/DAY, X 28 DAYS Q 42
     Dates: start: 20110202

REACTIONS (5)
  - DYSGEUSIA [None]
  - DECREASED APPETITE [None]
  - HIP FRACTURE [None]
  - FATIGUE [None]
  - VENA CAVA THROMBOSIS [None]
